FAERS Safety Report 7427684-8 (Version None)
Quarter: 2011Q1

REPORT INFORMATION
  Report Type: 
  Country: None (occurrence: None)
  Receive Date: 20110302
  Receipt Date: 20101123
  Transmission Date: 20110831
  Serious: No
  Sender: FDA-Public Use
  Company Number: 011807

PATIENT
  Sex: Female

DRUGS (4)
  1. CIMZIA [Suspect]
     Indication: CROHN'S DISEASE
     Dosage: (400 MG 1X/MONTH SUBCUTANEOUS), (400 MG 1X/MONTH SUBCUTANEOUS), (400 MC 1X/4 WEEKS)
     Route: 058
     Dates: start: 20081105, end: 20081101
  2. CIMZIA [Suspect]
     Indication: CROHN'S DISEASE
     Dosage: (400 MG 1X/MONTH SUBCUTANEOUS), (400 MG 1X/MONTH SUBCUTANEOUS), (400 MC 1X/4 WEEKS)
     Route: 058
     Dates: start: 20081114
  3. CIMZIA [Suspect]
  4. CIMZIA [Suspect]

REACTIONS (4)
  - ABDOMINAL PAIN [None]
  - FREQUENT BOWEL MOVEMENTS [None]
  - DIARRHOEA [None]
  - MALAISE [None]
